FAERS Safety Report 4339808-X (Version None)
Quarter: 2004Q2

REPORT INFORMATION
  Report Type: 
  Country: None (occurrence: None)
  Receive Date: 20040414
  Receipt Date: 20040414
  Transmission Date: 20050107
  Serious: Yes (Other)
  Sender: FDA-Public Use
  Company Number: None

PATIENT
  Sex: Female

DRUGS (2)
  1. ESTRADIOL [Suspect]
     Indication: HYSTERECTOMY
     Dosage: ONE PATCH PER SKIN WEEKLY
     Dates: start: 20040322, end: 20040329
  2. ESTRADIOL [Suspect]
     Indication: SALPINGO-OOPHORECTOMY BILATERAL
     Dosage: ONE PATCH PER SKIN WEEKLY
     Dates: start: 20040322, end: 20040329

REACTIONS (5)
  - ARTHRALGIA [None]
  - DRUG INEFFECTIVE [None]
  - FEELING ABNORMAL [None]
  - HOT FLUSH [None]
  - PHARMACEUTICAL PRODUCT COMPLAINT [None]
